FAERS Safety Report 4619741-6 (Version None)
Quarter: 2005Q1

REPORT INFORMATION
  Report Type: 
  Country: None (occurrence: None)
  Receive Date: 20050325
  Receipt Date: 20050315
  Transmission Date: 20050727
  Serious: Yes (Other)
  Sender: FDA-Public Use
  Company Number: US-MERCK-0503USA02845

PATIENT
  Age: 48 Year
  Sex: Male

DRUGS (1)
  1. INDOCIN [Suspect]
     Indication: EYELID TUMOUR
     Route: 048
     Dates: start: 20020101, end: 20020101

REACTIONS (4)
  - BLOOD CHOLESTEROL INCREASED [None]
  - BLOOD TRIGLYCERIDES INCREASED [None]
  - DRUG INEFFECTIVE [None]
  - MYCOSIS FUNGOIDES [None]
